FAERS Safety Report 7001732-1 (Version None)
Quarter: 2010Q3

REPORT INFORMATION
  Report Type: 
  Country: None (occurrence: None)
  Receive Date: 20100920
  Receipt Date: 20100910
  Transmission Date: 20110219
  Serious: Yes (Other)
  Sender: FDA-Public Use
  Company Number: GXKR2010FR10556

PATIENT
  Sex: Female
  Weight: 10 kg

DRUGS (1)
  1. AMOXICILLIN AND CLAVULANATE POTASSIUM [Suspect]
     Dosage: 1 DF, TID
     Route: 048
     Dates: start: 20100810, end: 20100812

REACTIONS (2)
  - ACCIDENTAL OVERDOSE [None]
  - WRONG TECHNIQUE IN DRUG USAGE PROCESS [None]
